FAERS Safety Report 12237896 (Version 1)
Quarter: 2016Q2

REPORT INFORMATION
  Report Type: Spontaneous
  Country: US (occurrence: US)
  Receive Date: 20160405
  Receipt Date: 20160405
  Transmission Date: 20160815
  Serious: Yes (Hospitalization)
  Sender: FDA-Public Use
  Company Number: US-PFIZER INC-2016128687

PATIENT
  Age: 29 Year
  Sex: Female

DRUGS (37)
  1. ACYCLOVIR /00587301/ [Concomitant]
     Active Substance: ACYCLOVIR
     Dosage: 400 MG, 4X/DAY
     Route: 048
     Dates: start: 20160222
  2. CYTARABINE. [Concomitant]
     Active Substance: CYTARABINE
     Dosage: 1780 MG, DAILY (NACL 0.9% 500ML)
     Route: 042
     Dates: start: 20160222, end: 20160226
  3. DEXAMETHASONE SODIUM PHOSPHATE. [Concomitant]
     Active Substance: DEXAMETHASONE SODIUM PHOSPHATE
     Dosage: 2 GTT, UNK (0.1% 2DROP)
     Route: 047
     Dates: start: 20160222, end: 20160226
  4. PHOS-NAK [Concomitant]
     Active Substance: POTASSIUM PHOSPHATE, MONOBASIC\SODIUM PHOSPHATE, DIBASIC, ANHYDROUS\SODIUM PHOSPHATE, MONOBASIC, MONOHYDRATE
     Dosage: 1.25 G, AS NEEDED
     Route: 048
     Dates: start: 20160222
  5. BIOTENE /03475601/ [Concomitant]
     Dosage: 320ML-480ML, 3X/DAY
     Route: 048
     Dates: start: 20160222
  6. VFEND [Suspect]
     Active Substance: VORICONAZOLE
     Indication: FUNGAL INFECTION
     Dosage: 200 MG, 2X/DAY
     Route: 048
  7. CALCIUM GLUCONATE. [Concomitant]
     Active Substance: CALCIUM GLUCONATE
     Dosage: 2 G, AS NEEDED (0.5% 250ML)
     Route: 042
     Dates: start: 20160222
  8. GRANISETRON [Concomitant]
     Active Substance: GRANISETRON
     Dosage: 1 MG, DAILY
     Route: 042
     Dates: start: 20160222, end: 20160226
  9. OXYCODONE AND ACETAMINOPHEN [Concomitant]
     Active Substance: ACETAMINOPHEN\OXYCODONE HYDROCHLORIDE
     Dosage: 1-2 TABLET Q6HR
     Route: 048
     Dates: start: 20160222, end: 20160301
  10. POTASSIUM CHLORIDE. [Concomitant]
     Active Substance: POTASSIUM CHLORIDE
     Dosage: 60 MEQ, AS NEEDED (0.5% 300ML)
     Route: 042
     Dates: start: 20160222
  11. POTASSIUM CHLORIDE. [Concomitant]
     Active Substance: POTASSIUM CHLORIDE
     Dosage: 80 MEQ, AS NEEDED (0.5% 400ML)
     Route: 042
     Dates: start: 20160222
  12. WATER FOR INJECTION [Concomitant]
     Active Substance: WATER
     Dosage: 10 ML, AS NEEDED
     Dates: start: 20160222
  13. TYLENOL [Concomitant]
     Active Substance: ACETAMINOPHEN
     Dosage: 650 MG, UNK (Q4HR)
     Route: 048
     Dates: start: 20160222
  14. SALINE /00075401/ [Concomitant]
     Active Substance: SODIUM CHLORIDE
     Dosage: 1-10 ML, AS NEEDED
     Route: 042
     Dates: start: 20160222
  15. CHLORHEXIDINE GLUCONATE. [Concomitant]
     Active Substance: CHLORHEXIDINE GLUCONATE
     Dosage: 15 ML, 2X/DAY
     Route: 048
     Dates: start: 20160222
  16. CLOFARABINE [Concomitant]
     Active Substance: CLOFARABINE
     Dosage: 71 MG, DAILY (0.5% 250ML)
     Route: 042
     Dates: start: 20160222, end: 20160226
  17. ONDANSETRON HCL [Concomitant]
     Active Substance: ONDANSETRON HYDROCHLORIDE
     Dosage: 8 MG, 4X/DAY (Q6HR)
     Route: 042
     Dates: start: 20160222
  18. PHENERGAN [Concomitant]
     Active Substance: PROMETHAZINE HYDROCHLORIDE
     Dosage: 12.5 MG, 4X/DAY (Q6HR)
     Route: 042
     Dates: start: 20160222
  19. DEXAMETHASONE SODIUM PHOSPHATE. [Concomitant]
     Active Substance: DEXAMETHASONE SODIUM PHOSPHATE
     Dosage: 8 MG, DAILY
     Route: 042
     Dates: start: 20160222, end: 20160226
  20. DIPHENHYDRAMINE HCL [Concomitant]
     Active Substance: DIPHENHYDRAMINE HYDROCHLORIDE
     Dosage: 25 MG, 4X/DAY (Q6HR)
     Route: 048
     Dates: start: 20160222
  21. FAMOTIDINE. [Concomitant]
     Active Substance: FAMOTIDINE
     Dosage: 20 MG, DAILY
     Route: 048
     Dates: start: 20160222, end: 20160226
  22. DEX4 [Concomitant]
     Dosage: 12 G, AS NEEDED
     Route: 048
     Dates: start: 20160222
  23. METHOTREXATE SODIUM. [Concomitant]
     Active Substance: METHOTREXATE SODIUM
     Dosage: 12 MG, WEEKLY
     Dates: start: 20160224, end: 20160330
  24. POTASSIUM AND MAGNESIUM REPLACEMENT PROTOCOL [Concomitant]
     Dosage: 1 DF, DAILY
     Dates: start: 20160222
  25. NACL [Concomitant]
     Active Substance: SODIUM CHLORIDE
     Dosage: 1.25 ML/MIN
  26. DEXTROSE IN WATER [Concomitant]
     Active Substance: DEXTROSE\WATER
     Dosage: 25 G, AS NEEDED (D50W)
     Route: 042
     Dates: start: 20160222
  27. GLUCAGON. [Concomitant]
     Active Substance: GLUCAGON
     Dosage: 1 MG, AS NEEDED
     Route: 030
     Dates: start: 20160222
  28. MILK OF MAGNESIA [Concomitant]
     Active Substance: MAGNESIUM HYDROXIDE
     Dosage: 30 ML, DAILY (30ML SUSP)
     Route: 048
     Dates: start: 20160222
  29. MAGNESIUM SULFATE. [Concomitant]
     Active Substance: MAGNESIUM SULFATE
     Dosage: 4 G, AS NEEDED (0.5% 100ML)
     Route: 042
     Dates: start: 20160222
  30. SENNA S [Concomitant]
     Active Substance: DOCUSATE SODIUM\SENNA LEAF
     Dosage: 1 DF, 2X/DAY
     Route: 048
     Dates: start: 20160222, end: 20160226
  31. XYLOCAINE [Concomitant]
     Active Substance: LIDOCAINE HYDROCHLORIDE
     Dosage: 0.25 ML, AS NEEDED
     Route: 023
     Dates: start: 20160222
  32. KLOR-CON M20 [Concomitant]
     Active Substance: POTASSIUM CHLORIDE
     Dosage: 40 MEQ, AS NEEDED
     Route: 048
     Dates: start: 20160222
  33. SODIUM PHOSPHATE [Concomitant]
     Active Substance: SODIUM PHOSPHATE
     Dosage: 11.25 MMOL, AS NEEDED
     Route: 042
     Dates: start: 20160222
  34. EUCERIN [Concomitant]
     Active Substance: ENSULIZOLE\EUCERIN\OCTINOXATE\OCTISALATE\TITANIUM DIOXIDE\ZINC OXIDE
     Dosage: 1 DF, 2X/DAY (1 APP CREAM)
     Route: 061
     Dates: start: 20160224
  35. LORAZEPAM. [Concomitant]
     Active Substance: LORAZEPAM
     Dosage: UNK, 4X/DAY (0.5-1 MG Q6HR)
     Route: 048
     Dates: start: 20160222, end: 20160301
  36. POTASSIUM CHLORIDE. [Concomitant]
     Active Substance: POTASSIUM CHLORIDE
     Dosage: 40 MEQ, AS NEEDED (0.5% 200ML)
     Route: 042
     Dates: start: 20160222
  37. POTASSIUM PHOSPHATE [Concomitant]
     Active Substance: POTASSIUM PHOSPHATE
     Dosage: 10 MMOL, AS NEEDED (0.5% 250ML)
     Route: 042
     Dates: start: 20160222

REACTIONS (1)
  - Acute leukaemia [Unknown]
